FAERS Safety Report 23508564 (Version 1)
Quarter: 2024Q1

REPORT INFORMATION
  Report Type: Spontaneous
  Country: US (occurrence: US)
  Receive Date: 20240209
  Receipt Date: 20240209
  Transmission Date: 20240409
  Serious: Yes (Other)
  Sender: FDA-Public Use
  Company Number: US-BAYER-2024A017717

PATIENT
  Sex: Male

DRUGS (1)
  1. NUBEQA [Suspect]
     Active Substance: DAROLUTAMIDE
     Dosage: UNK

REACTIONS (10)
  - Frequent bowel movements [None]
  - Dyschezia [None]
  - Discomfort [None]
  - Chest discomfort [None]
  - Musculoskeletal chest pain [None]
  - Pigmentation disorder [None]
  - Weight increased [None]
  - Increased appetite [None]
  - Asthenia [None]
  - Fatigue [None]
